FAERS Safety Report 23883724 (Version 1)
Quarter: 2024Q2

REPORT INFORMATION
  Report Type: Spontaneous
  Country: SE (occurrence: SE)
  Receive Date: 20240522
  Receipt Date: 20240522
  Transmission Date: 20240716
  Serious: Yes (Other)
  Sender: FDA-Public Use
  Company Number: None

PATIENT
  Age: 48 Year
  Sex: Male
  Weight: 85 kg

DRUGS (3)
  1. OXYCODONE [Suspect]
     Active Substance: OXYCODONE\OXYCODONE HYDROCHLORIDE
     Indication: Cholelithotomy
     Dosage: 1 CAPSULE MAX 4 PER DAY, OXYCODONE TEVA
     Route: 048
     Dates: start: 20231030
  2. IBUPROFEN [Concomitant]
     Active Substance: IBUPROFEN
     Indication: Product used for unknown indication
     Dosage: 1 TABLET THREE TIMES A DAY
     Route: 048
     Dates: start: 20231030
  3. Paracetamol Krka [Concomitant]
     Indication: Product used for unknown indication
     Dosage: IN CASE OF PAIN, 2 TABLETS 4 TIMES A DAY.
     Route: 048
     Dates: start: 20231030

REACTIONS (2)
  - Hypnagogic hallucination [Not Recovered/Not Resolved]
  - Hyperacusis [Not Recovered/Not Resolved]

NARRATIVE: CASE EVENT DATE: 20231030
